FAERS Safety Report 17857580 (Version 2)
Quarter: 2020Q3

REPORT INFORMATION
  Report Type: Spontaneous
  Country: US (occurrence: US)
  Receive Date: 20200604
  Receipt Date: 20200721
  Transmission Date: 20201103
  Serious: No
  Sender: FDA-Public Use
  Company Number: US-ASTRAZENECA-2020SE69703

PATIENT
  Sex: Female
  Weight: 98.9 kg

DRUGS (1)
  1. BYDUREON [Suspect]
     Active Substance: EXENATIDE
     Route: 058

REACTIONS (8)
  - Injury [Unknown]
  - Incorrect dose administered by device [Unknown]
  - Device issue [Unknown]
  - Hernia [Unknown]
  - Visual impairment [Not Recovered/Not Resolved]
  - Drug ineffective [Not Recovered/Not Resolved]
  - Weight fluctuation [Unknown]
  - Wrong technique in device usage process [Unknown]
